FAERS Safety Report 8450685-8 (Version None)
Quarter: 2012Q2

REPORT INFORMATION
  Report Type: 
  Country: None (occurrence: None)
  Receive Date: 20120615
  Receipt Date: 20120615
  Transmission Date: 20120825
  Serious: Yes (Other)
  Sender: FDA-Public Use
  Company Number: None

PATIENT
  Sex: Female
  Weight: 81.6475 kg

DRUGS (1)
  1. MIRENA [Suspect]
     Indication: CONTRACEPTION

REACTIONS (9)
  - DEPRESSION [None]
  - NAUSEA [None]
  - ANXIETY [None]
  - FEELING ABNORMAL [None]
  - WEIGHT INCREASED [None]
  - AMENORRHOEA [None]
  - FATIGUE [None]
  - BREAST TENDERNESS [None]
  - ACTIVITIES OF DAILY LIVING IMPAIRED [None]
